FAERS Safety Report 8993141 (Version 1)
Quarter: 2013Q1

REPORT INFORMATION
  Report Type: Report from Study
  Country: DE (occurrence: DE)
  Receive Date: 20130102
  Receipt Date: 20130102
  Transmission Date: 20140127
  Serious: Yes (Hospitalization)
  Sender: FDA-Public Use
  Company Number: DE-BAXTER-2012BAX028813

PATIENT
  Age: 49 Year
  Sex: Female

DRUGS (4)
  1. ENDOXAN 1G [Suspect]
     Indication: BREAST CANCER METASTATIC
     Route: 042
     Dates: start: 20070727, end: 20070907
  2. CAPECITABINE [Suspect]
     Indication: BREAST CANCER METASTATIC
     Route: 048
     Dates: start: 20070921, end: 20071107
  3. EPIRUBICIN [Suspect]
     Indication: BREAST CANCER METASTATIC
     Route: 042
     Dates: start: 20070727, end: 20070907
  4. PACLITAXEL [Suspect]
     Indication: BREAST CANCER METASTATIC
     Route: 042
     Dates: start: 20070921, end: 20071207

REACTIONS (3)
  - Sinusitis [Recovered/Resolved]
  - Upper respiratory tract infection [Unknown]
  - Pyrexia [Recovered/Resolved]
